FAERS Safety Report 24229946 (Version 1)
Quarter: 2024Q3

REPORT INFORMATION
  Report Type: Spontaneous
  Country: US (occurrence: None)
  Receive Date: 20240820
  Receipt Date: 20240820
  Transmission Date: 20241017
  Serious: No
  Sender: Public
  Company Number: None

PATIENT
  Age: 80 Year
  Sex: Female

DRUGS (1)
  1. PIMECROLIMUS [Suspect]
     Active Substance: PIMECROLIMUS
     Indication: Dermatitis contact
     Dosage: APPLY A SMALL AMOUNT TO AFFECTED AREA(S) TWICE DAILY AS DIRECTED.
     Route: 061
     Dates: start: 202406

REACTIONS (1)
  - Chest pain [None]
